FAERS Safety Report 4952767-1 (Version None)
Quarter: 2006Q1

REPORT INFORMATION
  Report Type: 
  Country: None (occurrence: None)
  Receive Date: 20060320
  Receipt Date: 20060306
  Transmission Date: 20060701
  Serious: Yes (Other)
  Sender: FDA-Public Use
  Company Number: 200420295BWH

PATIENT
  Age: 57 Year
  Sex: Male

DRUGS (2)
  1. LEVITRA [Suspect]
     Indication: ERECTILE DYSFUNCTION
     Dosage: 1O MG, TOTAL DAILY, ORAL
     Route: 048
     Dates: start: 20031101, end: 20040501
  2. VIAGRA [Concomitant]

REACTIONS (4)
  - RETINAL HAEMORRHAGE [None]
  - SCOTOMA [None]
  - VISION BLURRED [None]
  - VISUAL DISTURBANCE [None]
